FAERS Safety Report 9194553 (Version 1)
Quarter: 2013Q1

REPORT INFORMATION
  Report Type: Spontaneous
  Country: US (occurrence: US)
  Receive Date: 20130327
  Receipt Date: 20130327
  Transmission Date: 20140127
  Serious: No
  Sender: FDA-Public Use
  Company Number: US-ALLERGAN-1205268US

PATIENT
  Age: 67 Year
  Sex: Female

DRUGS (5)
  1. LATISSE 0.03% [Suspect]
     Indication: GROWTH OF EYELASHES
     Dosage: 2 GTT, QHS
     Route: 061
     Dates: start: 201202
  2. ARMOUR THYROID [Concomitant]
     Indication: HYPOTHYROIDISM
  3. DOXYCILLIN [Concomitant]
     Indication: DYSPEPSIA
  4. LYRICA [Concomitant]
     Indication: SLEEP DISORDER
  5. RESTASIS? [Concomitant]
     Indication: DRY EYE
     Dosage: 2 GTT, BID
     Route: 047

REACTIONS (6)
  - Drug administered at inappropriate site [Unknown]
  - Wrong technique in drug usage process [Unknown]
  - Hypersensitivity [Recovered/Resolved]
  - Blister [Recovered/Resolved]
  - Eye pruritus [Recovered/Resolved]
  - Growth of eyelashes [Recovered/Resolved]
